APPROVED DRUG PRODUCT: DIFLUPREDNATE
Active Ingredient: DIFLUPREDNATE
Strength: 0.05%
Dosage Form/Route: EMULSION;OPHTHALMIC
Application: A213774 | Product #001 | TE Code: AB
Applicant: ALEMBIC PHARMACEUTICALS LTD
Approved: Jan 26, 2026 | RLD: No | RS: No | Type: RX